FAERS Safety Report 9363894 (Version 1)
Quarter: 2013Q2

REPORT INFORMATION
  Report Type: Spontaneous
  Country: PL (occurrence: None)
  Receive Date: 20130618
  Receipt Date: 20130618
  Transmission Date: 20140414
  Serious: Yes (Other)
  Sender: FDA-Public Use
  Company Number: 2013P1007182

PATIENT
  Age: 50 Year
  Sex: Female

DRUGS (3)
  1. LIDOCAINE [Suspect]
  2. METRONIDAZOLE [Suspect]
  3. PENICILLIN [Suspect]

REACTIONS (3)
  - Rash maculo-papular [None]
  - Bronchospasm [None]
  - Allergy test positive [None]
